FAERS Safety Report 17742667 (Version 1)
Quarter: 2020Q2

REPORT INFORMATION
  Report Type: Spontaneous
  Country: FR (occurrence: FR)
  Receive Date: 20200504
  Receipt Date: 20200504
  Transmission Date: 20200714
  Serious: Yes (Death)
  Sender: FDA-Public Use
  Company Number: FR-CUMBERLAND-2020-FR-000009

PATIENT
  Age: 9 Year
  Sex: Female
  Weight: 30 kg

DRUGS (6)
  1. MANNITOL. [Suspect]
     Active Substance: MANNITOL
  2. DOBUTAMINE [Suspect]
     Active Substance: DOBUTAMINE HYDROCHLORIDE
  3. THIOPENTAL SODIUM. [Concomitant]
     Active Substance: THIOPENTAL SODIUM
  4. NORMAL SALINE SOLUTION [Suspect]
     Active Substance: SODIUM CHLORIDE
  5. NORADRENALINE [Suspect]
     Active Substance: NOREPINEPHRINE
  6. ACETADOTE [Suspect]
     Active Substance: ACETYLCYSTEINE
     Route: 042

REACTIONS (1)
  - Drug ineffective [Fatal]
